FAERS Safety Report 9402957 (Version 1)
Quarter: 2013Q3

REPORT INFORMATION
  Report Type: Spontaneous
  Country: US (occurrence: None)
  Receive Date: 20130715
  Receipt Date: 20130715
  Transmission Date: 20140515
  Serious: No
  Sender: FDA-Public Use
  Company Number: None

PATIENT
  Age: 49 Year
  Sex: Female
  Weight: 74.2 kg

DRUGS (6)
  1. FLUORESCEIN [Suspect]
     Dosage: 500 MG IV PUSH
     Route: 042
     Dates: start: 20130417
  2. ESTROVEN [Concomitant]
  3. VITAMIN C [Concomitant]
  4. VITAMIN E [Concomitant]
  5. ZINC [Concomitant]
  6. VITAMIN A [Concomitant]

REACTIONS (8)
  - Pruritus [None]
  - Swelling face [None]
  - Pharyngeal oedema [None]
  - Throat irritation [None]
  - Feeling abnormal [None]
  - Urticaria [None]
  - Erythema [None]
  - Anxiety [None]
